FAERS Safety Report 16290529 (Version 1)
Quarter: 2019Q2

REPORT INFORMATION
  Report Type: Spontaneous
  Country: US (occurrence: US)
  Receive Date: 20190403
  Receipt Date: 20190403
  Transmission Date: 20190711
  Serious: Yes (Hospitalization)
  Sender: FDA-Public Use
  Company Number: None

PATIENT
  Age: 75 Year
  Sex: Male
  Weight: 54.7 kg

DRUGS (3)
  1. LEUCOVORIN CALCIUM. [Suspect]
     Active Substance: LEUCOVORIN CALCIUM
     Dates: end: 20190313
  2. ELOXATIN [Suspect]
     Active Substance: OXALIPLATIN
     Dates: start: 20190313
  3. 5-FLUOROURACIL (5-FU) [Suspect]
     Active Substance: FLUOROURACIL
     Dates: end: 20190315

REACTIONS (14)
  - Delirium [None]
  - Arteriosclerosis coronary artery [None]
  - Spinal compression fracture [None]
  - Pleural effusion [None]
  - Hyperglycaemia [None]
  - Pyrexia [None]
  - Pulmonary mass [None]
  - Renal cyst [None]
  - Respiratory failure [None]
  - Emphysema [None]
  - Dysphagia [None]
  - Pneumonia [None]
  - Hip fracture [None]
  - Loss of consciousness [None]

NARRATIVE: CASE EVENT DATE: 20190319
